FAERS Safety Report 23626274 (Version 5)
Quarter: 2024Q2

REPORT INFORMATION
  Report Type: Other
  Country: US (occurrence: US)
  Receive Date: 20240313
  Receipt Date: 20240429
  Transmission Date: 20240716
  Serious: No
  Sender: FDA-Public Use
  Company Number: US-TRAVERE-2024TVT00239

PATIENT
  Age: 62 Year
  Sex: Female

DRUGS (5)
  1. FILSPARI [Suspect]
     Active Substance: SPARSENTAN
     Indication: Haematuria
     Dosage: 1 TIME A DAY FOR DAYS 1-14
     Route: 048
     Dates: start: 202402
  2. FILSPARI [Suspect]
     Active Substance: SPARSENTAN
     Indication: IgA nephropathy
     Dosage: 2 TABLETS BY MOUTH 1 TIME A DAY ON DAYS 15-30.
     Route: 048
     Dates: start: 202402
  3. FILSPARI [Suspect]
     Active Substance: SPARSENTAN
     Route: 048
  4. LOSARTAN [Concomitant]
     Active Substance: LOSARTAN
  5. SPIRONOLACTONE [Concomitant]
     Active Substance: SPIRONOLACTONE

REACTIONS (7)
  - Brain fog [Unknown]
  - Depressed level of consciousness [Unknown]
  - Fatigue [Unknown]
  - Hypotension [Recovering/Resolving]
  - Feeling abnormal [Unknown]
  - Blood creatinine decreased [Unknown]
  - Contraindicated product administered [Unknown]
